FAERS Safety Report 24747807 (Version 1)
Quarter: 2024Q4

REPORT INFORMATION
  Report Type: Spontaneous
  Country: US (occurrence: None)
  Receive Date: 20241217
  Receipt Date: 20241217
  Transmission Date: 20250115
  Serious: No
  Sender: Public
  Company Number: None

PATIENT
  Age: 67 Year
  Sex: Female

DRUGS (1)
  1. POMALYST [Suspect]
     Active Substance: POMALIDOMIDE
     Indication: Plasma cell myeloma
     Dosage: FREQUENCY : DAILY;?
     Route: 048
     Dates: start: 20241112, end: 20241129

REACTIONS (6)
  - Pruritus [None]
  - Pruritus [None]
  - Pruritus [None]
  - Erythema [None]
  - Ear swelling [None]
  - Swelling of eyelid [None]

NARRATIVE: CASE EVENT DATE: 20241129
